FAERS Safety Report 18968439 (Version 1)
Quarter: 2021Q1

REPORT INFORMATION
  Report Type: Spontaneous
  Country: DE (occurrence: DE)
  Receive Date: 20210304
  Receipt Date: 20210304
  Transmission Date: 20210420
  Serious: Yes (Other)
  Sender: FDA-Public Use
  Company Number: NVSC2021DE046029

PATIENT
  Sex: Female

DRUGS (2)
  1. TAFINLAR [Suspect]
     Active Substance: DABRAFENIB MESYLATE
     Indication: NEOPLASM MALIGNANT
     Dosage: 75 MG, BID
     Route: 065
     Dates: start: 201910, end: 20201031
  2. MEKINIST [Suspect]
     Active Substance: TRAMETINIB DIMETHYL SULFOXIDE
     Indication: NEOPLASM MALIGNANT
     Dosage: 2 MG IN THE EVENING
     Route: 065
     Dates: start: 201910, end: 20201031

REACTIONS (1)
  - Metastases to skin [Recovered/Resolved]

NARRATIVE: CASE EVENT DATE: 202012
